FAERS Safety Report 4841966-5 (Version None)
Quarter: 2005Q4

REPORT INFORMATION
  Report Type: 
  Country: None (occurrence: None)
  Receive Date: 20051129
  Receipt Date: 20051116
  Transmission Date: 20060501
  Serious: Yes (Hospitalization)
  Sender: FDA-Public Use
  Company Number: 2005142248

PATIENT
  Age: 2 Year
  Sex: Female
  Weight: 11.3399 kg

DRUGS (1)
  1. FRESHBURST LISTERINE MOUTHWASH (MENTHOL, METHYL SALICYLATE, EUCALYPTOL [Suspect]
     Indication: ACCIDENTAL EXPOSURE
     Dosage: 1 TSP OR 1 TBS ONCE, ORAL
     Route: 048
     Dates: start: 20051012, end: 20051012

REACTIONS (2)
  - ACCIDENTAL DRUG INTAKE BY CHILD [None]
  - ALCOHOL POISONING [None]
